FAERS Safety Report 9638914 (Version 2)
Quarter: 2013Q4

REPORT INFORMATION
  Report Type: Spontaneous
  Country: US (occurrence: US)
  Receive Date: 20131022
  Receipt Date: 20131022
  Transmission Date: 20140711
  Serious: No
  Sender: FDA-Public Use
  Company Number: US-BRISTOL-MYERS SQUIBB COMPANY-19088640

PATIENT
  Age: 86 Year
  Sex: Male
  Weight: 72.56 kg

DRUGS (6)
  1. ELIQUIS [Suspect]
     Indication: ATRIAL FIBRILLATION
  2. TOPROL [Concomitant]
  3. METOPROLOL [Concomitant]
  4. LISINOPRIL [Concomitant]
  5. VERAPAMIL [Concomitant]
  6. FLOMAX [Concomitant]

REACTIONS (1)
  - Dyspnoea exertional [Unknown]
